FAERS Safety Report 22246990 (Version 1)
Quarter: 2023Q2

REPORT INFORMATION
  Report Type: Spontaneous
  Country: US (occurrence: US)
  Receive Date: 20230424
  Receipt Date: 20230424
  Transmission Date: 20230722
  Serious: Yes (Disabling, Other)
  Sender: FDA-Public Use
  Company Number: US-TEVA-2023-US-2879685

PATIENT
  Age: 62 Year
  Sex: Female
  Weight: 106.59 kg

DRUGS (33)
  1. DOCETAXEL [Suspect]
     Active Substance: DOCETAXEL
     Indication: Invasive ductal breast carcinoma
     Dosage: FREQUENCY: EVERY THREE WEEKS, 6 CYCLES
     Route: 065
     Dates: start: 20140402, end: 20140723
  2. DOCETAXEL [Suspect]
     Active Substance: DOCETAXEL
     Indication: Triple negative breast cancer
     Dosage: FREQUENCY: EVERY 21 DAYS 6 CYCLES, 160 MG
     Route: 065
     Dates: start: 20160408, end: 20160804
  3. DOCETAXEL [Suspect]
     Active Substance: DOCETAXEL
     Indication: Breast cancer metastatic
     Dosage: FREQUENCY: EVERY 21 DAYS 3 CYCLES, 150 MG
     Route: 065
     Dates: start: 20160915, end: 20161103
  4. DOCETAXEL [Suspect]
     Active Substance: DOCETAXEL
     Indication: Invasive ductal breast carcinoma
     Dosage: FREQUENCY: EVERY THREE WEEKS, 6 CYCLES
     Route: 065
     Dates: start: 20140402, end: 20140723
  5. DOCETAXEL [Suspect]
     Active Substance: DOCETAXEL
     Indication: Triple negative breast cancer
     Dosage: FREQUENCY: EVERY 21 DAYS 6 CYCLES, 160 MG
     Route: 065
     Dates: start: 20160408, end: 20160804
  6. DOCETAXEL [Suspect]
     Active Substance: DOCETAXEL
     Indication: Breast cancer metastatic
     Dosage: FREQUENCY: EVERY 21 DAYS 3 CYCLES, 150 MG
     Route: 065
     Dates: start: 20160915, end: 20161103
  7. DOCETAXEL [Suspect]
     Active Substance: DOCETAXEL
     Indication: Invasive ductal breast carcinoma
     Dosage: FREQUENCY: EVERY THREE WEEKS, 6 CYCLES
     Route: 065
     Dates: start: 20140402, end: 20140723
  8. DOCETAXEL [Suspect]
     Active Substance: DOCETAXEL
     Indication: Triple negative breast cancer
     Dosage: FREQUENCY: EVERY 21 DAYS 6 CYCLES, 160 MG
     Route: 065
     Dates: start: 20160408, end: 20160804
  9. DOCETAXEL [Suspect]
     Active Substance: DOCETAXEL
     Indication: Breast cancer metastatic
     Dosage: FREQUENCY: EVERY 21 DAYS 3 CYCLES, 150 MG
     Route: 065
     Dates: start: 20160915, end: 20161103
  10. CYTOXAN [Suspect]
     Active Substance: CYCLOPHOSPHAMIDE
     Indication: Invasive ductal breast carcinoma
     Dosage: FREQUENCY: EVERY THREE WEEKS, 6  CYCLES
     Route: 065
     Dates: start: 20140402, end: 20140723
  11. CYTOXAN [Suspect]
     Active Substance: CYCLOPHOSPHAMIDE
     Indication: Triple negative breast cancer
     Dosage: FREQUENCY: EVERY 21 DAYS, 6 CYCLES, 1000 MG
     Route: 065
     Dates: start: 20160408, end: 20160804
  12. HERCEPTIN [Suspect]
     Active Substance: TRASTUZUMAB
     Indication: Invasive ductal breast carcinoma
     Dosage: FREQUENCY: EVERY THREE WEEKS, 6  CYCLES
     Route: 065
     Dates: start: 20140402, end: 20140723
  13. HERCEPTIN [Suspect]
     Active Substance: TRASTUZUMAB
     Dosage: FREQUENCY: EVERY 21 DAYS
     Route: 065
     Dates: start: 20140813, end: 20150805
  14. PERJETA [Suspect]
     Active Substance: PERTUZUMAB
     Indication: Invasive ductal breast carcinoma
     Dosage: FREQUENCY: EVERY THREE WEEKS, 6  CYCLES
     Route: 065
     Dates: start: 20140402, end: 20140723
  15. TAXOL [Suspect]
     Active Substance: PACLITAXEL
     Indication: Invasive ductal breast carcinoma
     Dosage: FREQUENCY: EVERY 21 DAYS
     Route: 065
     Dates: start: 20140307
  16. ADRIAMYCIN [Suspect]
     Active Substance: DOXORUBICIN HYDROCHLORIDE
     Indication: Triple negative breast cancer
     Dosage: FREQUENCY: EVERY 21 DAYS 6 CYCLES,104 MG
     Route: 065
     Dates: start: 20160408, end: 20160804
  17. XELODA [Concomitant]
     Active Substance: CAPECITABINE
     Indication: Breast cancer recurrent
     Dosage: 1250MG/M2 BID,  2 WEEKS ON 1 WEEK OFF X 2 CYCLES
     Route: 065
     Dates: start: 20170403
  18. GEMCITABINE [Concomitant]
     Active Substance: GEMCITABINE
     Indication: Product used for unknown indication
     Route: 065
  19. AMBIEN [Concomitant]
     Active Substance: ZOLPIDEM TARTRATE
     Indication: Product used for unknown indication
     Dosage: 5 MG
     Route: 065
  20. SANCUSO [Concomitant]
     Active Substance: GRANISETRON
     Indication: Product used for unknown indication
     Dosage: 3.1 MG/24 HOUR TRANSDERMAL PATCH
     Route: 062
  21. Miracle Mouthwash [Concomitant]
     Indication: Product used for unknown indication
     Route: 065
  22. NYSTOP [Concomitant]
     Active Substance: NYSTATIN
     Indication: Product used for unknown indication
     Dosage: 100,000 UNIT/GRAM TOPICAL POWDER
     Route: 061
  23. DURAGESIC [Concomitant]
     Active Substance: FENTANYL
     Indication: Product used for unknown indication
     Dosage: 12MCG/25 MCG/HR TRANSDERMAL PATCH
     Route: 062
  24. FLONASE [Concomitant]
     Active Substance: FLUTICASONE PROPIONATE
     Indication: Product used for unknown indication
     Route: 065
  25. ONDANSETRON [Concomitant]
     Active Substance: ONDANSETRON
     Indication: Product used for unknown indication
     Dosage: 8 MG
     Route: 065
  26. PROMETHAZINE [Concomitant]
     Active Substance: PROMETHAZINE HYDROCHLORIDE
     Indication: Product used for unknown indication
     Dosage: 25 MG
     Route: 065
  27. ALOXI [Concomitant]
     Active Substance: PALONOSETRON HYDROCHLORIDE
     Indication: Product used for unknown indication
     Dosage: FREQUENCY: EVERY 21 DAYS, 6 CYCLES,250 MCG
     Route: 065
     Dates: start: 20160408, end: 20160804
  28. DECADRON [Concomitant]
     Active Substance: DEXAMETHASONE
     Indication: Product used for unknown indication
     Dosage: FREQUENCY: EVERY 21 DAYS, 6 CYCLES,10 MG
     Route: 042
     Dates: start: 20160408, end: 20160804
  29. DECADRON [Concomitant]
     Active Substance: DEXAMETHASONE
     Dosage: FREQUENCY: EVERY 21 DAYS, 3 CYCLES,10 MG
     Route: 042
     Dates: start: 20160915, end: 20161103
  30. EMEND [Concomitant]
     Active Substance: APREPITANT
     Indication: Product used for unknown indication
     Dosage: FREQUENCY: EVERY 21 DAYS, 6 CYCLES, 150 MG
     Route: 042
     Dates: start: 20160408, end: 20160804
  31. NEULASTA [Concomitant]
     Active Substance: PEGFILGRASTIM
     Indication: Product used for unknown indication
     Dosage: FREQUENCY: EVERY 21 DAYS, 6 CYCLES, 6 MG
     Route: 065
     Dates: start: 20160408, end: 20160804
  32. NEULASTA [Concomitant]
     Active Substance: PEGFILGRASTIM
     Dosage: FREQUENCY: EVERY 21 DAYS, 3 CYCLES, 6 MG
     Route: 065
     Dates: start: 20160915, end: 20161103
  33. ZOFRAN [Concomitant]
     Active Substance: ONDANSETRON HYDROCHLORIDE
     Indication: Product used for unknown indication
     Dosage: FREQUENCY: EVERY 21 DAYS, 3 CYCLES, 16 MG
     Route: 065
     Dates: start: 20160915, end: 20161103

REACTIONS (15)
  - Alopecia areata [Not Recovered/Not Resolved]
  - Madarosis [Not Recovered/Not Resolved]
  - Triple negative breast cancer [Unknown]
  - Hair texture abnormal [Not Recovered/Not Resolved]
  - Hair colour changes [Not Recovered/Not Resolved]
  - Haematotoxicity [Unknown]
  - Alopecia [Unknown]
  - Nausea [Unknown]
  - Constipation [Recovered/Resolved]
  - Cough [Unknown]
  - Oropharyngeal pain [Unknown]
  - Rhinorrhoea [Unknown]
  - Dyspepsia [Unknown]
  - Fatigue [Unknown]
  - Decreased appetite [Unknown]

NARRATIVE: CASE EVENT DATE: 20140101
